FAERS Safety Report 8436814-0 (Version None)
Quarter: 2012Q2

REPORT INFORMATION
  Report Type: 
  Country: None (occurrence: None)
  Receive Date: 20120614
  Receipt Date: 20120604
  Transmission Date: 20120825
  Serious: Yes (Life-Threatening)
  Sender: FDA-Public Use
  Company Number: JP-BAYER-2011-092660

PATIENT
  Age: 76 Year
  Sex: Male
  Weight: 49 kg

DRUGS (14)
  1. YODEL [Concomitant]
     Dosage: 3 DF, QD
     Route: 048
  2. NOVOLIN R [Concomitant]
     Dosage: 22 U, QD
     Route: 058
  3. MARZULENE S [Concomitant]
     Dosage: 0.5 MG, TID
     Route: 048
  4. DILTIAZEM HCL [Concomitant]
     Dosage: 100 MG, QD
     Route: 048
  5. LENDORMIN [Concomitant]
     Dosage: 0.25 MG, PRN
     Route: 048
  6. BERIZYM [ENZYMES NOS] [Concomitant]
     Dosage: 1 G, TID
  7. ASPIRIN [Concomitant]
     Dosage: 100 MG, QD
     Route: 048
  8. MAGMITT [Concomitant]
     Dosage: 500 MG, TID
     Route: 048
  9. ORADOL [Concomitant]
     Dosage: 0.5 MG, BID
     Route: 049
  10. PRAVASTATIN SODIUM [Concomitant]
     Dosage: 10 MG, QD
     Route: 048
  11. TAMSULOSIN HCL [Concomitant]
     Dosage: 0.2 MG, QD
     Route: 048
  12. NEXAVAR [Suspect]
     Indication: HEPATIC NEOPLASM MALIGNANT
     Dosage: 200 MG, BID
     Route: 048
     Dates: start: 20110921, end: 20110925
  13. CASODEX [Concomitant]
     Dosage: 80 MG, QD
     Route: 048
  14. LANSOPRAZOLE [Concomitant]
     Dosage: 30 MG, QD
     Route: 048

REACTIONS (1)
  - INTERSTITIAL LUNG DISEASE [None]
